FAERS Safety Report 9735754 (Version 1)
Quarter: 2013Q4

REPORT INFORMATION
  Report Type: Spontaneous
  Country: US (occurrence: US)
  Receive Date: 20131206
  Receipt Date: 20131206
  Transmission Date: 20140711
  Serious: No
  Sender: FDA-Public Use
  Company Number: US-GILEAD-2009-0022671

PATIENT
  Age: 68 Year
  Sex: Male

DRUGS (16)
  1. LETAIRIS [Suspect]
     Indication: PULMONARY ARTERIAL HYPERTENSION
     Route: 048
     Dates: start: 20090220
  2. LIPITOR [Concomitant]
  3. LISINOPRIL [Concomitant]
  4. ASPIRIN [Concomitant]
  5. LASIX [Concomitant]
  6. PLAVIX [Concomitant]
  7. PROVENTIL [Concomitant]
  8. SINGULAIR [Concomitant]
  9. FORADIL [Concomitant]
  10. NEXIUM [Concomitant]
  11. CHONDROITIN [Concomitant]
  12. GLUCOSAMINE [Concomitant]
  13. FLOMAX [Concomitant]
  14. NIASPAN [Concomitant]
  15. FOLIC ACID [Concomitant]
  16. ZINC [Concomitant]

REACTIONS (2)
  - Thinking abnormal [Unknown]
  - Depressive symptom [Unknown]
